FAERS Safety Report 9317726 (Version 1)
Quarter: 2013Q2

REPORT INFORMATION
  Report Type: Spontaneous
  Country: US (occurrence: US)
  Receive Date: 20130530
  Receipt Date: 20130530
  Transmission Date: 20140414
  Serious: No
  Sender: FDA-Public Use
  Company Number: US-NOVEN-12US004998

PATIENT
  Age: 24 Year
  Sex: Male
  Weight: 68.03 kg

DRUGS (4)
  1. DAYTRANA [Suspect]
     Indication: ATTENTION DEFICIT/HYPERACTIVITY DISORDER
     Dosage: 10 MG, UNK
     Route: 062
     Dates: start: 20120702
  2. DAYTRANA [Suspect]
     Dosage: 15 MG, UNK
     Route: 062
  3. ALLERGY MEDICATION [Concomitant]
     Indication: HYPERSENSITIVITY
     Dosage: UNK
  4. LEVOTHYROXINE [Concomitant]
     Indication: THYROID DISORDER
     Dosage: 25 UG, QD

REACTIONS (3)
  - Drug ineffective [Not Recovered/Not Resolved]
  - Incorrect drug administration duration [Not Recovered/Not Resolved]
  - Off label use [Not Recovered/Not Resolved]
